FAERS Safety Report 5223599-4 (Version None)
Quarter: 2007Q1

REPORT INFORMATION
  Report Type: 
  Country: None (occurrence: None)
  Receive Date: 20070125
  Receipt Date: 20070115
  Transmission Date: 20070707
  Serious: Yes (Life-Threatening, Hospitalization, Other)
  Sender: FDA-Public Use
  Company Number: 2006SP004547

PATIENT
  Age: 81 Year
  Sex: Female
  Weight: 76 kg

DRUGS (1)
  1. TEMODAL [Suspect]
     Indication: METASTATIC MALIGNANT MELANOMA
     Dosage: 280 MG; QD; PO
     Route: 048
     Dates: start: 20060929, end: 20061018

REACTIONS (8)
  - ASTHENIA [None]
  - BACTERIAL INFECTION [None]
  - DISEASE PROGRESSION [None]
  - FEBRILE NEUTROPENIA [None]
  - INFECTION [None]
  - LIVER DISORDER [None]
  - SERRATIA INFECTION [None]
  - THROMBOCYTOPENIA [None]
